APPROVED DRUG PRODUCT: HELICOSOL
Active Ingredient: UREA C-13
Strength: 125MG/VIAL
Dosage Form/Route: FOR SOLUTION;ORAL
Application: N021092 | Product #001
Applicant: METABOLIC SOLUTIONS INC
Approved: Dec 17, 1999 | RLD: No | RS: No | Type: DISCN